FAERS Safety Report 5862786-9 (Version None)
Quarter: 2008Q3

REPORT INFORMATION
  Report Type: 
  Country: None (occurrence: None)
  Receive Date: 20080828
  Receipt Date: 20080822
  Transmission Date: 20090109
  Serious: Yes (Hospitalization)
  Sender: FDA-Public Use
  Company Number: US-AMGEN-US194733

PATIENT
  Sex: Female

DRUGS (10)
  1. ETANERCEPT [Suspect]
     Indication: HEPATITIS ALCOHOLIC
     Route: 065
     Dates: start: 20060602, end: 20060608
  2. FOLTX [Concomitant]
     Route: 048
  3. THIAMINE HCL [Concomitant]
     Route: 048
  4. SENOKOT [Concomitant]
     Route: 048
  5. VITAMIN K TAB [Concomitant]
     Route: 048
  6. LACTULOSE [Concomitant]
     Route: 065
  7. TYLENOL (CAPLET) [Concomitant]
     Route: 048
  8. OXYCODONE HCL [Concomitant]
     Route: 048
  9. SPIRONOLACTONE [Concomitant]
     Route: 048
  10. LASIX [Concomitant]
     Route: 048

REACTIONS (3)
  - ATELECTASIS [None]
  - LUNG INFILTRATION [None]
  - PERITONITIS BACTERIAL [None]
